FAERS Safety Report 7497110-1 (Version None)
Quarter: 2011Q2

REPORT INFORMATION
  Report Type: 
  Country: None (occurrence: None)
  Receive Date: 20110523
  Receipt Date: 20110513
  Transmission Date: 20111010
  Serious: Yes (Death, Other)
  Sender: FDA-Public Use
  Company Number: PHHY2011GB42986

PATIENT
  Sex: Female

DRUGS (2)
  1. SERTRALINE HYDROCHLORIDE [Suspect]
     Indication: AFFECTIVE DISORDER
     Dosage: 50 MG, UNK
     Route: 064
     Dates: start: 20101222, end: 20110329
  2. SEROQUEL XR [Suspect]
     Indication: AFFECTIVE DISORDER
     Dosage: 50 MG, UNK
     Route: 064
     Dates: start: 20101221, end: 20110329

REACTIONS (4)
  - STILLBIRTH [None]
  - UMBILICAL CORD ABNORMALITY [None]
  - FOETAL HEART RATE ABNORMAL [None]
  - DRUG EXPOSURE DURING PREGNANCY [None]
